FAERS Safety Report 13981098 (Version 1)
Quarter: 2017Q3

REPORT INFORMATION
  Report Type: Spontaneous
  Country: US (occurrence: None)
  Receive Date: 20170915
  Receipt Date: 20170915
  Transmission Date: 20171128
  Serious: Yes (Hospitalization)
  Sender: FDA-Public Use
  Company Number: None

PATIENT
  Age: 57 Year
  Sex: Male

DRUGS (25)
  1. ATOVAQUONE. [Concomitant]
     Active Substance: ATOVAQUONE
  2. CALCIUM + VITAMIN D [Concomitant]
     Active Substance: CALCIUM\VITAMIN D
  3. CEFEPIME [Concomitant]
     Active Substance: CEFEPIME HYDROCHLORIDE
  4. CLONIDINE. [Concomitant]
     Active Substance: CLONIDINE
  5. INSULIN GLARGINE [Concomitant]
     Active Substance: INSULIN GLARGINE
  6. MAGNESIUM OXIDE. [Concomitant]
     Active Substance: MAGNESIUM OXIDE
  7. ATORVASTATIN [Concomitant]
     Active Substance: ATORVASTATIN
  8. CYANOCOBALAMIN. [Concomitant]
     Active Substance: CYANOCOBALAMIN
  9. TACROLIMUS. [Concomitant]
     Active Substance: TACROLIMUS
  10. LIDOCAINE. [Concomitant]
     Active Substance: LIDOCAINE
  11. MULTIVITAMIN [Concomitant]
     Active Substance: VITAMINS
  12. PREDNISONE. [Concomitant]
     Active Substance: PREDNISONE
  13. FEBUXOSTAT. [Concomitant]
     Active Substance: FEBUXOSTAT
  14. SENNA [Concomitant]
     Active Substance: SENNA LEAF\SENNOSIDES\SENNOSIDES A AND B
  15. HYDRALAZINE [Concomitant]
     Active Substance: HYDRALAZINE HYDROCHLORIDE
  16. DESIPRAMINE [Suspect]
     Active Substance: DESIPRAMINE
     Indication: PAIN
     Route: 048
     Dates: start: 20170729, end: 20170823
  17. PREGABALIN. [Suspect]
     Active Substance: PREGABALIN
     Route: 048
  18. DILTIAZEM. [Concomitant]
     Active Substance: DILTIAZEM
  19. DOCUSATE [Concomitant]
     Active Substance: DOCUSATE
  20. INSULIN ASPART [Concomitant]
     Active Substance: INSULIN ASPART
  21. ASCORBIC ACID. [Concomitant]
     Active Substance: ASCORBIC ACID
  22. FERROUS SULFATE. [Concomitant]
     Active Substance: FERROUS SULFATE
  23. ONDANSETRON [Concomitant]
     Active Substance: ONDANSETRON
  24. SILDENAFIL. [Concomitant]
     Active Substance: SILDENAFIL
  25. TORSEMIDE. [Concomitant]
     Active Substance: TORSEMIDE

REACTIONS (3)
  - Blood creatinine abnormal [None]
  - Feeling abnormal [None]
  - Tremor [None]

NARRATIVE: CASE EVENT DATE: 20170824
